FAERS Safety Report 20589017 (Version 1)
Quarter: 2022Q1

REPORT INFORMATION
  Report Type: Spontaneous
  Country: FR (occurrence: FR)
  Receive Date: 20220314
  Receipt Date: 20220314
  Transmission Date: 20220423
  Serious: Yes (Other)
  Sender: FDA-Public Use
  Company Number: FR-SUN PHARMACEUTICAL INDUSTRIES LTD-2022RR-329703

PATIENT
  Age: 63 Year
  Sex: Female
  Weight: 129 kg

DRUGS (9)
  1. PREGABALIN [Suspect]
     Active Substance: PREGABALIN
     Indication: Product used for unknown indication
     Dosage: 100 MILLIGRAM, DAILY
     Route: 048
     Dates: end: 20220202
  2. SUFENTANIL [Suspect]
     Active Substance: SUFENTANIL
     Indication: Anaesthesia
     Dosage: IN TOTAL
     Route: 042
     Dates: start: 20220131, end: 20220131
  3. EPHEDRINE [Suspect]
     Active Substance: EPHEDRINE
     Indication: Product used for unknown indication
     Dosage: IN TOTAL
     Route: 042
     Dates: start: 20220131, end: 20220131
  4. METRONIDAZOLE [Suspect]
     Active Substance: METRONIDAZOLE
     Indication: Prophylaxis
     Dosage: 500 MILLIGRAM, TID
     Route: 042
     Dates: start: 20220126, end: 20220201
  5. PROPOFOL LIPURO [Suspect]
     Active Substance: PROPOFOL
     Indication: Anaesthesia
     Dosage: IN TOTAL
     Route: 042
     Dates: start: 20220131, end: 20220131
  6. SUCCINYLCHOLINE [Suspect]
     Active Substance: SUCCINYLCHOLINE
     Indication: Anaesthesia
     Dosage: IN TOTAL
     Route: 042
     Dates: start: 20220131, end: 20220131
  7. IOMERON [Suspect]
     Active Substance: IOMEPROL
     Indication: Endoscopic retrograde cholangiopancreatography
     Dosage: 10 MILLILITER, IN TOTAL
     Route: 065
     Dates: start: 20220131, end: 20220131
  8. IOBITRIDOL [Suspect]
     Active Substance: IOBITRIDOL
     Indication: Computerised tomogram
     Dosage: 140 MILLILITER, IN TOTAL
     Route: 042
     Dates: start: 20220125, end: 20220125
  9. CEFTRIAXONE SODIUM [Suspect]
     Active Substance: CEFTRIAXONE SODIUM
     Indication: Prophylaxis
     Dosage: 1 GRAM, IN TOTAL
     Route: 042
     Dates: start: 20220126, end: 20220201

REACTIONS (3)
  - Neutrophilia [Recovering/Resolving]
  - Eosinophilia [Recovering/Resolving]
  - Rash maculo-papular [Recovering/Resolving]

NARRATIVE: CASE EVENT DATE: 20220131
